FAERS Safety Report 25055306 (Version 1)
Quarter: 2025Q1

REPORT INFORMATION
  Report Type: Spontaneous
  Country: US (occurrence: US)
  Receive Date: 20250308
  Receipt Date: 20250308
  Transmission Date: 20250409
  Serious: Yes (Other)
  Sender: Unknown Manufacturer
  Company Number: US-KOANAAP-SML-US-2025-00150

PATIENT
  Age: 26 Year
  Sex: Male

DRUGS (9)
  1. DOCETAXEL [Suspect]
     Active Substance: DOCETAXEL
     Indication: Testis cancer
  2. GEMCITABINE [Suspect]
     Active Substance: GEMCITABINE
     Indication: Testis cancer
  3. PACLITAXEL [Suspect]
     Active Substance: PACLITAXEL
     Indication: Testis cancer
  4. IFOSFAMIDE [Suspect]
     Active Substance: IFOSFAMIDE
     Indication: Testis cancer
  5. CISPLATIN [Suspect]
     Active Substance: CISPLATIN
     Indication: Testis cancer
  6. MELPHALAN [Suspect]
     Active Substance: MELPHALAN
     Indication: Testis cancer
  7. CARBOPLATIN [Suspect]
     Active Substance: CARBOPLATIN
     Indication: Testis cancer
  8. IFOSFAMIDE [Suspect]
     Active Substance: IFOSFAMIDE
     Indication: Testis cancer
  9. ETOPOSIDE [Suspect]
     Active Substance: ETOPOSIDE
     Indication: Testis cancer

REACTIONS (1)
  - Treatment failure [Unknown]
